FAERS Safety Report 7369419-3 (Version None)
Quarter: 2011Q1

REPORT INFORMATION
  Report Type: 
  Country: None (occurrence: None)
  Receive Date: 20110321
  Receipt Date: 20110321
  Transmission Date: 20110831
  Serious: Yes (Death, Hospitalization)
  Sender: FDA-Public Use
  Company Number: None

PATIENT
  Age: 82 Year
  Sex: Female

DRUGS (8)
  1. QVAR 40 [Concomitant]
  2. ATENOLOL [Concomitant]
  3. SIMVASTATIN [Concomitant]
  4. AMLODIPINE BESYLATE [Concomitant]
  5. ASPIRIN [Concomitant]
  6. CALCIUM + VITAMIN D [Concomitant]
  7. COMBIVENT [Concomitant]
  8. REVLIMID [Suspect]
     Indication: MULTIPLE MYELOMA
     Dosage: 10MG DAILY X21D/28D ORALLY
     Route: 048
     Dates: start: 20091128, end: 20091207

REACTIONS (5)
  - DYSPNOEA [None]
  - BACK PAIN [None]
  - NASOPHARYNGITIS [None]
  - COUGH [None]
  - CHEST PAIN [None]
